FAERS Safety Report 4428684-2 (Version None)
Quarter: 2004Q3

REPORT INFORMATION
  Report Type: 
  Country: None (occurrence: None)
  Receive Date: 20040818
  Receipt Date: 20031031
  Transmission Date: 20050211
  Serious: No
  Sender: FDA-Public Use
  Company Number: US-BRISTOL-MYERS SQUIBB COMPANY-12423943

PATIENT
  Age: 69 Year
  Sex: Male
  Weight: 75 kg

DRUGS (13)
  1. TEQUIN [Suspect]
     Indication: URINARY TRACT INFECTION
     Route: 048
     Dates: start: 20030927, end: 20031006
  2. TOPROL-XL [Concomitant]
  3. ASPIRIN [Concomitant]
  4. ALEVE [Concomitant]
     Dosage: DOSAGE FORM - TABLET
  5. SELENIUM TRACE METAL ADDITIVE [Concomitant]
  6. POTASSIUM [Concomitant]
  7. CALCIUM [Concomitant]
  8. FISH OIL [Concomitant]
  9. MAGNESIUM [Concomitant]
  10. MULTI-VITAMIN [Concomitant]
  11. VITAMIN A [Concomitant]
  12. VITAMIN C [Concomitant]
  13. VITAMIN E [Concomitant]

REACTIONS (1)
  - PROSTATIC SPECIFIC ANTIGEN INCREASED [None]
